FAERS Safety Report 5251787-X (Version None)
Quarter: 2007Q1

REPORT INFORMATION
  Report Type: 
  Country: None (occurrence: None)
  Receive Date: 20070228
  Receipt Date: 20070216
  Transmission Date: 20070707
  Serious: Yes (Hospitalization)
  Sender: FDA-Public Use
  Company Number: GB-PFIZER INC-2007014040

PATIENT
  Sex: Female

DRUGS (2)
  1. EPANUTIN SUSPENSION [Suspect]
     Indication: EPILEPSY
  2. ASPIRIN [Concomitant]

REACTIONS (1)
  - ORTHOPEDIC PROCEDURE [None]
